FAERS Safety Report 17001030 (Version 1)
Quarter: 2019Q4

REPORT INFORMATION
  Report Type: Report from Study
  Country: ES (occurrence: ES)
  Receive Date: 20191106
  Receipt Date: 20191106
  Transmission Date: 20200122
  Serious: Yes (Death, Hospitalization)
  Sender: FDA-Public Use
  Company Number: ES-PFIZER INC-2019477384

PATIENT
  Age: 37 Year
  Sex: Male

DRUGS (6)
  1. BUSULFAN. [Suspect]
     Active Substance: BUSULFAN
     Indication: ACUTE MYELOID LEUKAEMIA
     Dosage: 240 MG, SINGLE
     Route: 042
     Dates: start: 20130822, end: 20130824
  2. CICLOSPORIN [Suspect]
     Active Substance: CYCLOSPORINE
     Dosage: UNK
     Route: 065
     Dates: start: 20130820
  3. MESNA. [Concomitant]
     Active Substance: MESNA
     Indication: ACUTE MYELOID LEUKAEMIA
     Dosage: 8 G, SINGLE
     Route: 042
     Dates: start: 20130825, end: 20130826
  4. FLUDARABINE [Suspect]
     Active Substance: FLUDARABINE PHOSPHATE
     Indication: ACUTE MYELOID LEUKAEMIA
     Dosage: 240 MG, SINGLE
     Route: 042
     Dates: start: 20130821, end: 20130824
  5. METHYLPREDNISOLONE SODIUM SUCCINATE. [Suspect]
     Active Substance: METHYLPREDNISOLONE SODIUM SUCCINATE
     Indication: ACUTE MYELOID LEUKAEMIA
     Dosage: 80 MG, SINGLE
     Route: 042
     Dates: start: 20130827, end: 20130827
  6. CYCLOPHOSPHAMIDE. [Suspect]
     Active Substance: CYCLOPHOSPHAMIDE
     Indication: ACUTE MYELOID LEUKAEMIA
     Dosage: 2 G, SINGLE
     Route: 042
     Dates: start: 20130824, end: 20130825

REACTIONS (1)
  - Cytomegalovirus hepatitis [Fatal]

NARRATIVE: CASE EVENT DATE: 20130909
